FAERS Safety Report 6347567-4 (Version None)
Quarter: 2009Q3

REPORT INFORMATION
  Report Type: 
  Country: None (occurrence: None)
  Receive Date: 20090910
  Receipt Date: 20090902
  Transmission Date: 20100115
  Serious: Yes (Other)
  Sender: FDA-Public Use
  Company Number: US-ABBOTT-09P-163-0595203-00

PATIENT
  Age: 5 Year
  Sex: Male

DRUGS (7)
  1. HUMIRA [Suspect]
     Indication: PSORIASIS
     Route: 058
     Dates: start: 20050501, end: 20090902
  2. HUMIRA [Suspect]
     Indication: RHEUMATOID ARTHRITIS
  3. UNKNOWN TNF INHIBITOR [Suspect]
     Indication: PSORIASIS
     Route: 065
  4. UNKNOWN TNF INHIBITOR [Suspect]
     Indication: RHEUMATOID ARTHRITIS
  5. IMMUNGLOBULIN [Concomitant]
     Indication: IMMUNODEFICIENCY
     Route: 058
  6. METHOTREXATE [Concomitant]
     Indication: PSORIASIS
     Route: 058
  7. METHOTREXATE [Concomitant]
     Indication: RHEUMATOID ARTHRITIS

REACTIONS (5)
  - COORDINATION ABNORMAL [None]
  - DEAFNESS [None]
  - HYPOKINESIA [None]
  - HYPOTONIA [None]
  - LEUKODYSTROPHY [None]
